FAERS Safety Report 7794479-5 (Version None)
Quarter: 2011Q4

REPORT INFORMATION
  Report Type: 
  Country: None (occurrence: None)
  Receive Date: 20111004
  Receipt Date: 20110922
  Transmission Date: 20120403
  Serious: Yes (Other)
  Sender: FDA-Public Use
  Company Number: TH-BAYER-2011-089250

PATIENT
  Age: 27 Year
  Sex: Female
  Weight: 56.2 kg

DRUGS (5)
  1. RIFAMPIN [Suspect]
     Indication: PULMONARY TUBERCULOSIS
     Dates: start: 20110815
  2. PLACEBO [Suspect]
     Indication: PULMONARY TUBERCULOSIS
     Dosage: UNK
     Dates: start: 20110815
  3. MOXIFLOXACIN [Suspect]
     Indication: PULMONARY TUBERCULOSIS
     Dates: start: 20110815
  4. PYRAZINAMIDE [Suspect]
     Indication: PULMONARY TUBERCULOSIS
     Dates: start: 20110815
  5. ISONIAZID [Suspect]
     Indication: PULMONARY TUBERCULOSIS
     Dosage: DAILY DOSE 300 MG
     Dates: start: 20110815

REACTIONS (2)
  - ARTHRALGIA [None]
  - TENDONITIS [None]
